FAERS Safety Report 5464998-5 (Version None)
Quarter: 2007Q3

REPORT INFORMATION
  Report Type: 
  Country: None (occurrence: None)
  Receive Date: 20070820
  Receipt Date: 20070618
  Transmission Date: 20080115
  Serious: No
  Sender: FDA-Public Use
  Company Number: TPA2007A01320

PATIENT
  Age: 69 Year
  Sex: Female
  Weight: 48.9885 kg

DRUGS (13)
  1. ROZEREM [Suspect]
     Indication: INSOMNIA
     Dosage: 8 MG, HS, PER ORAL
     Route: 048
     Dates: start: 20070615, end: 20070618
  2. ASACOL [Concomitant]
  3. PLAQUENIL [Concomitant]
  4. PREDNISONE TAB [Concomitant]
  5. CLARITIN [Concomitant]
  6. PRILOSEC [Concomitant]
  7. DETROL [Concomitant]
  8. ENALAPRIL MALEATE [Concomitant]
  9. FOSAMAX (ALENDRONATE4 SODIUM) [Concomitant]
  10. NASONEX [Concomitant]
  11. HYDROCHLOROTHIAZIDE [Concomitant]
  12. ADVAIR INHALER (FLUTICASONE PROPIONATE, SALMETEROL XINAFOATE) [Concomitant]
  13. ATROVENT INHALER (IPRATROPIUM BROMIDE) (INHALANT) [Concomitant]

REACTIONS (2)
  - FORMICATION [None]
  - MIDDLE INSOMNIA [None]
